FAERS Safety Report 8826747 (Version 1)
Quarter: 2012Q4

REPORT INFORMATION
  Report Type: 
  Country: NO (occurrence: NO)
  Receive Date: 20121005
  Receipt Date: 20121005
  Transmission Date: 20130627
  Serious: Yes (Hospitalization, Congenital Anomaly)
  Sender: FDA-Public Use
  Company Number: NO-GLAXOSMITHKLINE-B0682386B

PATIENT
  Age: 0 None
  Sex: Female

DRUGS (4)
  1. LAMICTAL [Suspect]
     Indication: PRODUCT USED FOR UNKNOWN INDICATION
     Route: 064
  2. ORFIRIL [Suspect]
     Indication: EPILEPSY
     Route: 064
  3. DISIPAL [Suspect]
     Indication: PRODUCT USED FOR UNKNOWN INDICATION
     Route: 064
  4. TRILAFON [Suspect]
     Indication: EPILEPSY
     Route: 064

REACTIONS (10)
  - Epilepsy [Unknown]
  - Dyskinesia [Unknown]
  - Vitamin K deficiency [Unknown]
  - Drug withdrawal syndrome neonatal [Recovered/Resolved]
  - Attention deficit/hyperactivity disorder [Not Recovered/Not Resolved]
  - Sensorimotor disorder [Unknown]
  - Moderate mental retardation [Unknown]
  - Cognitive disorder [Recovered/Resolved]
  - Foetal exposure during pregnancy [Recovered/Resolved]
  - Exposure during breast feeding [Recovered/Resolved]
